FAERS Safety Report 7691065-2 (Version None)
Quarter: 2011Q3

REPORT INFORMATION
  Report Type: 
  Country: None (occurrence: None)
  Receive Date: 20110818
  Receipt Date: 20110805
  Transmission Date: 20111222
  Serious: Yes (Hospitalization)
  Sender: FDA-Public Use
  Company Number: FR-ROCHE-797163

PATIENT
  Sex: Male
  Weight: 68 kg

DRUGS (8)
  1. BEVACIZUMAB [Suspect]
     Dosage: FREQUENCY: 3 SEM.
     Route: 042
     Dates: start: 20101224, end: 20110204
  2. CISPLATIN [Suspect]
     Dosage: FREQUENCY: 3 SEM
     Route: 042
     Dates: start: 20101224, end: 20110204
  3. FOLIC ACID [Concomitant]
     Dosage: FREQUENCY: 1CP/JR
     Route: 048
     Dates: start: 20101224
  4. LASIX [Concomitant]
     Route: 048
     Dates: start: 20101204
  5. IMOVANE [Concomitant]
     Route: 048
     Dates: start: 20101224
  6. PREDNISOLONE [Concomitant]
     Dosage: FREQUENCY: 1CP/JR
     Route: 048
     Dates: start: 20101224
  7. KEPPRA [Concomitant]
     Route: 048
     Dates: start: 20101224
  8. ALIMTA [Suspect]
     Dosage: FREQUENCY: 3 SEM
     Route: 042
     Dates: start: 20101224, end: 20110204

REACTIONS (1)
  - PNEUMOTHORAX [None]
